FAERS Safety Report 16565469 (Version 1)
Quarter: 2019Q3

REPORT INFORMATION
  Report Type: Spontaneous
  Country: DE (occurrence: DE)
  Receive Date: 20190712
  Receipt Date: 20190712
  Transmission Date: 20191004
  Serious: Yes (Hospitalization, Other)
  Sender: FDA-Public Use
  Company Number: DE-MYLANLABS-2019M1064082

PATIENT
  Age: 88 Year
  Sex: Male

DRUGS (1)
  1. METOPROLOL. [Suspect]
     Active Substance: METOPROLOL
     Indication: PRODUCT USED FOR UNKNOWN INDICATION
     Dosage: 47.5 MILLIGRAM, BID 47.5 MILLIGRAM (1-0-1)
     Route: 048

REACTIONS (3)
  - Accidental overdose [Unknown]
  - Cardiac arrest [Unknown]
  - Transcription medication error [Unknown]

NARRATIVE: CASE EVENT DATE: 20181214
